FAERS Safety Report 12271500 (Version 2)
Quarter: 2016Q2

REPORT INFORMATION
  Report Type: Report from Study
  Country: US (occurrence: US)
  Receive Date: 20160415
  Receipt Date: 20160505
  Transmission Date: 20160815
  Serious: Yes (Hospitalization)
  Sender: FDA-Public Use
  Company Number: PHHO2016US005494

PATIENT
  Age: 63 Year
  Sex: Female
  Weight: 55.5 kg

DRUGS (2)
  1. GSK1120212 [Suspect]
     Active Substance: TRAMETINIB
     Indication: HEPATOCELLULAR CARCINOMA
     Dosage: 1.5 MG, QD
     Route: 048
     Dates: start: 20151228, end: 20160314
  2. SORAFENIB [Suspect]
     Active Substance: SORAFENIB
     Indication: HEPATOCELLULAR CARCINOMA
     Dosage: 200 MG, BID
     Route: 065
     Dates: start: 20151228

REACTIONS (2)
  - Pleural effusion [Unknown]
  - Lung infection [Unknown]

NARRATIVE: CASE EVENT DATE: 20160406
